FAERS Safety Report 6965305-9 (Version None)
Quarter: 2010Q3

REPORT INFORMATION
  Report Type: 
  Country: None (occurrence: None)
  Receive Date: 20100903
  Receipt Date: 20100825
  Transmission Date: 20110219
  Serious: Yes (Hospitalization)
  Sender: FDA-Public Use
  Company Number: US-JNJFOC-20091201713

PATIENT
  Sex: Female
  Weight: 63.5 kg

DRUGS (18)
  1. DURAGESIC-100 [Suspect]
     Indication: PAIN
     Route: 062
  2. DURAGESIC-100 [Suspect]
     Route: 062
  3. DURAGESIC-100 [Suspect]
     Indication: IDIOPATHIC PULMONARY FIBROSIS
     Route: 062
  4. DURAGESIC-100 [Suspect]
     Route: 062
  5. DURAGESIC-100 [Suspect]
     Route: 062
  6. DURAGESIC-100 [Suspect]
     Route: 062
  7. DURAGESIC-100 [Suspect]
     Route: 062
  8. DURAGESIC-100 [Suspect]
     Route: 062
  9. DURAGESIC-100 [Suspect]
     Route: 062
  10. DURAGESIC-100 [Suspect]
     Route: 062
  11. UNKNOWN MEDICATION [Concomitant]
  12. PRILOSEC [Concomitant]
     Indication: DYSPEPSIA
     Route: 048
  13. SINGULAIR [Concomitant]
     Indication: RESPIRATORY DISORDER
     Route: 048
  14. PREDNISONE [Concomitant]
     Indication: PULMONARY FIBROSIS
     Route: 048
  15. PLAQUENIL [Concomitant]
     Indication: BONE DISORDER
     Route: 048
  16. FLEXERIL [Concomitant]
     Indication: MUSCLE DISORDER
     Route: 048
  17. ALPRAZOLAM [Concomitant]
     Indication: DEPRESSION
     Dosage: AS NEEDED
     Route: 048
  18. BACTRIM DS [Concomitant]
     Indication: LUNG DISORDER
     Route: 048

REACTIONS (13)
  - ABDOMINAL PAIN UPPER [None]
  - ADVERSE EVENT [None]
  - APATHY [None]
  - BODY HEIGHT DECREASED [None]
  - DERMATITIS CONTACT [None]
  - DIARRHOEA [None]
  - FATIGUE [None]
  - INADEQUATE ANALGESIA [None]
  - MALAISE [None]
  - NAUSEA [None]
  - PRODUCT ADHESION ISSUE [None]
  - SPINAL FRACTURE [None]
  - WRONG TECHNIQUE IN DRUG USAGE PROCESS [None]
